FAERS Safety Report 6765617-8 (Version None)
Quarter: 2010Q2

REPORT INFORMATION
  Report Type: 
  Country: None (occurrence: None)
  Receive Date: 20100611
  Receipt Date: 20100601
  Transmission Date: 20101027
  Serious: Yes (Other)
  Sender: FDA-Public Use
  Company Number: US-ELI_LILLY_AND_COMPANY-US201004008238

PATIENT
  Age: 55 Year
  Sex: Female

DRUGS (6)
  1. BYETTA [Suspect]
     Dosage: 10 UG, 2/D
     Dates: start: 20050101, end: 20100331
  2. BYETTA [Suspect]
     Dosage: 5 UG, UNK
     Dates: start: 20100422
  3. LIRAGLUTIDE [Concomitant]
     Dosage: 0.6 MG, UNK
     Dates: start: 20100401, end: 20100401
  4. LIRAGLUTIDE [Concomitant]
     Dosage: 1.2 MG, UNK
     Dates: start: 20100401, end: 20100414
  5. LIRAGLUTIDE [Concomitant]
     Dosage: 1.8 MG, UNK
     Dates: start: 20100415, end: 20100401
  6. INSULIN [Concomitant]

REACTIONS (3)
  - BREAST CANCER [None]
  - DERMATITIS [None]
  - OFF LABEL USE [None]
